FAERS Safety Report 17916662 (Version 2)
Quarter: 2020Q2

REPORT INFORMATION
  Report Type: Spontaneous
  Country: CA (occurrence: CA)
  Receive Date: 20200619
  Receipt Date: 20200622
  Transmission Date: 20200714
  Serious: Yes (Death, Life-Threatening)
  Sender: FDA-Public Use
  Company Number: CA-PFIZER INC-2020235860

PATIENT
  Age: 19 Year
  Sex: Male

DRUGS (5)
  1. MORPHINE SULFATE. [Suspect]
     Active Substance: MORPHINE SULFATE
     Indication: BACK PAIN
     Dosage: UNK (WITH RAPIDLY ESCALATING DOSES)
     Route: 042
     Dates: start: 19921002
  2. HYDROMORPHONE HYDROCHLORIDE. [Suspect]
     Active Substance: HYDROMORPHONE HYDROCHLORIDE
     Indication: ARTHRALGIA
     Dosage: 2600 MG (PER HR)
     Route: 051
     Dates: start: 19920929, end: 19921002
  3. MORPHINE SULFATE. [Suspect]
     Active Substance: MORPHINE SULFATE
     Dosage: 6000 MG (ADMINISTERED IN THE HOUR PRIOR TO SEIZURE)
     Route: 042
  4. HYDROMORPHONE HYDROCHLORIDE. [Suspect]
     Active Substance: HYDROMORPHONE HYDROCHLORIDE
     Indication: BACK PAIN
  5. MORPHINE SULFATE. [Suspect]
     Active Substance: MORPHINE SULFATE
     Indication: ARTHRALGIA
     Dosage: 12000 MG (WITHIN THE FIRST 2 HR)
     Route: 042
     Dates: start: 19921003

REACTIONS (3)
  - Neurotoxicity [Fatal]
  - Myoclonus [Fatal]
  - Seizure [Fatal]

NARRATIVE: CASE EVENT DATE: 199210
